FAERS Safety Report 4820239-0 (Version None)
Quarter: 2005Q4

REPORT INFORMATION
  Report Type: 
  Country: None (occurrence: None)
  Receive Date: 20051104
  Receipt Date: 20050928
  Transmission Date: 20060501
  Serious: Yes (Other)
  Sender: FDA-Public Use
  Company Number: 2005UW14456

PATIENT
  Age: 62 Year
  Sex: Female

DRUGS (17)
  1. ANASTROZOLE [Suspect]
     Indication: BREAST CANCER METASTATIC
     Route: 048
  2. LONAFARNIB CODE NOT BROKEN [Suspect]
     Indication: BREAST CANCER METASTATIC
     Route: 048
  3. MULTI-VITAMINS [Concomitant]
     Dates: start: 19980101
  4. ROBAXACET [Concomitant]
     Indication: HEADACHE
     Dates: start: 19950101, end: 20050701
  5. OXAZEPAM [Concomitant]
     Indication: INSOMNIA
     Dates: start: 20000501, end: 20050701
  6. CALCIUM GLUCONATE [Concomitant]
     Dates: start: 20030101, end: 20050610
  7. HYDROCHLOROTHIAZIDE [Concomitant]
     Indication: HYPERTENSION
     Dates: start: 20030101
  8. FLONASE [Concomitant]
     Indication: RHINITIS ALLERGIC
     Dates: start: 20020101
  9. SYMBICORT [Concomitant]
     Indication: ASTHMA
     Dates: start: 20020101
  10. EFFEXOR [Concomitant]
     Indication: DEPRESSION
     Dates: start: 20020101
  11. ATIVAN [Concomitant]
     Indication: ANXIETY
     Dates: start: 20050418, end: 20050701
  12. CLODRONATE DISODIUM [Concomitant]
     Indication: METASTASIS
     Dates: start: 20050602, end: 20050609
  13. RANITIDINE [Concomitant]
     Indication: GASTROOESOPHAGEAL REFLUX DISEASE
     Dates: start: 20050602
  14. TYLENOL W/ CODEINE [Concomitant]
     Indication: MUSCULOSKELETAL CHEST PAIN
     Dates: start: 20050605
  15. IMODIUM [Concomitant]
     Indication: DIARRHOEA
     Dates: start: 20050613
  16. ZOMETA [Concomitant]
     Indication: HYPERCALCAEMIA
     Dates: start: 20050610, end: 20050610
  17. ATARAX [Concomitant]
     Indication: PRURITUS
     Dates: start: 20050803

REACTIONS (1)
  - HYPOKALAEMIA [None]
